FAERS Safety Report 4822586-5 (Version None)
Quarter: 2005Q4

REPORT INFORMATION
  Report Type: 
  Country: None (occurrence: None)
  Receive Date: 20051104
  Receipt Date: 20051021
  Transmission Date: 20060501
  Serious: Yes (Hospitalization)
  Sender: FDA-Public Use
  Company Number: 2005P1000487

PATIENT
  Age: 73 Year
  Sex: Male
  Weight: 69.9 kg

DRUGS (8)
  1. RETEPLASE (RETEPLASE) [Suspect]
     Indication: ACUTE MYOCARDIAL INFARCTION
     Dosage: IV
     Route: 042
     Dates: start: 20050821, end: 20050821
  2. ABCIXIMAB                         (ABCIXIMAB) [Suspect]
     Indication: ACUTE MYOCARDIAL INFARCTION
     Dosage: IV
     Route: 042
     Dates: start: 20050821
  3. FUROSEMIDE [Concomitant]
  4. RABEPRAZOLE SODIUM [Concomitant]
  5. THEOPHYLLINE [Concomitant]
  6. PAROXETINE HCL [Concomitant]
  7. ZOPICLONE [Concomitant]
  8. MIDODRINE HCL [Concomitant]

REACTIONS (3)
  - ANGINA UNSTABLE [None]
  - DYSPEPSIA [None]
  - POST PROCEDURAL COMPLICATION [None]
